FAERS Safety Report 9177999 (Version 1)
Quarter: 2013Q1

REPORT INFORMATION
  Report Type: Spontaneous
  Country: US (occurrence: None)
  Receive Date: 20130315
  Receipt Date: 20130315
  Transmission Date: 20140127
  Serious: Yes (Hospitalization)
  Sender: FDA-Public Use
  Company Number: ACO_34360_2013

PATIENT
  Age: 66 Year
  Sex: Female
  Weight: 68 kg

DRUGS (4)
  1. AMPYRA (DALFAMPRIDINE) TABLET, 10MG [Suspect]
     Indication: PRODUCT USED FOR UNKNOWN INDICATION
     Dates: start: 2012
  2. SOLU-MEDROL (METHYLPREDNISOLON SODIUM SUCCINATE) [Suspect]
     Indication: PRODUCT USED FOR UNKNOWN INDICATION
     Dates: start: 201212, end: 20121226
  3. PRIMIDONE (PRIMIDONE) [Concomitant]
  4. VENLAFAXINE (VENLAFAXINE HYDROCHLORIDE) (UNKNOWN) (VENLAFAXINE HYDROCHLORIDE) [Concomitant]

REACTIONS (7)
  - Urinary tract infection [None]
  - Multiple sclerosis relapse [None]
  - Electrolyte imbalance [None]
  - Hypokalaemia [None]
  - Hypomagnesaemia [None]
  - Blood glucose increased [None]
  - Klebsiella test positive [None]
